FAERS Safety Report 23223435 (Version 2)
Quarter: 2024Q1

REPORT INFORMATION
  Report Type: Spontaneous
  Country: US (occurrence: US)
  Receive Date: 20231123
  Receipt Date: 20240102
  Transmission Date: 20240410
  Serious: No
  Sender: FDA-Public Use
  Company Number: US-BIOVITRUM-2023-US-018914

PATIENT
  Age: 15 Year
  Sex: Male

DRUGS (2)
  1. GAMIFANT [Suspect]
     Active Substance: EMAPALUMAB-LZSG
     Indication: Haemophagocytic lymphohistiocytosis
     Dosage: 360 MG
     Dates: start: 20231110
  2. GAMIFANT [Suspect]
     Active Substance: EMAPALUMAB-LZSG
     Dosage: 180 MG MAINTENANCE DOSE X3
     Dates: start: 20231110

REACTIONS (1)
  - Hypertension [Not Recovered/Not Resolved]

NARRATIVE: CASE EVENT DATE: 20231115
